FAERS Safety Report 5004271-2 (Version None)
Quarter: 2006Q2

REPORT INFORMATION
  Report Type: 
  Country: None (occurrence: None)
  Receive Date: 20060517
  Receipt Date: 20051122
  Transmission Date: 20061013
  Serious: Yes (Hospitalization, Other)
  Sender: FDA-Public Use
  Company Number: US-MERCK-0511USA03833

PATIENT
  Age: 59 Year
  Sex: Male
  Weight: 77 kg

DRUGS (17)
  1. VIOXX [Suspect]
     Indication: ARTHRITIS
     Route: 048
     Dates: start: 20010201, end: 20041001
  2. VIOXX [Suspect]
     Indication: BACK PAIN
     Route: 048
     Dates: start: 20010201, end: 20041001
  3. TOPROL-XL [Concomitant]
     Route: 065
  4. ZESTRIL [Concomitant]
     Route: 065
  5. NORVASC [Concomitant]
     Route: 065
  6. LIPITOR [Concomitant]
     Route: 065
  7. ASPIRIN [Concomitant]
     Route: 065
  8. NEXIUM [Concomitant]
     Route: 065
  9. ATACAND [Concomitant]
     Route: 065
  10. XANAX [Concomitant]
     Route: 048
  11. VICODIN [Concomitant]
     Route: 065
  12. VERAPAMIL MSD LP [Concomitant]
     Route: 048
  13. METOPROLOL-BC [Concomitant]
     Route: 065
  14. COUMADIN [Concomitant]
     Route: 065
  15. COUMADIN [Concomitant]
     Route: 065
  16. LOTRISONE [Concomitant]
     Route: 065
  17. FUROSEMIDE [Concomitant]
     Route: 065

REACTIONS (6)
  - CEREBROVASCULAR ACCIDENT [None]
  - DEHYDRATION [None]
  - DIABETES MELLITUS NON-INSULIN-DEPENDENT [None]
  - HERNIA [None]
  - INCISIONAL HERNIA [None]
  - RENAL FAILURE [None]
